FAERS Safety Report 7771999-0 (Version None)
Quarter: 2011Q3

REPORT INFORMATION
  Report Type: 
  Country: None (occurrence: None)
  Receive Date: 20110920
  Receipt Date: 20110905
  Transmission Date: 20111222
  Serious: Yes (Life-Threatening, Hospitalization, Other)
  Sender: FDA-Public Use
  Company Number: TPA2011A03253

PATIENT
  Age: 70 Year
  Sex: Female

DRUGS (8)
  1. NAUZELIN (DOMPERI DONE) [Concomitant]
  2. PLAVIX [Concomitant]
  3. CRESTOR [Concomitant]
  4. SEIBULE (MIGLITOL) [Concomitant]
  5. THYRADIN (THYROID) [Concomitant]
  6. BONALON (ALENDRONIC ACID) [Concomitant]
  7. MICARDIS [Concomitant]
  8. FEBURIC (FEBUXOSTAT) [Suspect]
     Indication: HYPERURICAEMIA
     Dosage: 20 MG (20 MG,1 IN 1 D) ORAL
     Route: 048
     Dates: start: 20110606

REACTIONS (10)
  - BLOOD ALKALINE PHOSPHATASE INCREASED [None]
  - ALANINE AMINOTRANSFERASE INCREASED [None]
  - BLOOD LACTATE DEHYDROGENASE INCREASED [None]
  - JAUNDICE [None]
  - GAMMA-GLUTAMYLTRANSFERASE INCREASED [None]
  - ASPARTATE AMINOTRANSFERASE INCREASED [None]
  - ADULT T-CELL LYMPHOMA/LEUKAEMIA [None]
  - MALAISE [None]
  - LIVER DISORDER [None]
  - RASH PRURITIC [None]
